FAERS Safety Report 5935589-4 (Version None)
Quarter: 2008Q4

REPORT INFORMATION
  Report Type: 
  Country: None (occurrence: None)
  Receive Date: 20081030
  Receipt Date: 20081017
  Transmission Date: 20090506
  Serious: Yes (Death, Congenital Anomaly)
  Sender: FDA-Public Use
  Company Number: B0532355A

PATIENT

DRUGS (5)
  1. LAMOTRIGINE [Suspect]
     Dosage: 100MG PER DAY
  2. ACETAZOLAMIDE [Suspect]
     Dosage: 250MG PER DAY
  3. CARBAMAZEPINE [Suspect]
     Dosage: 400MG PER DAY
  4. ASPIRIN [Concomitant]
  5. HEPARIN [Concomitant]

REACTIONS (4)
  - CARDIAC ANEURYSM [None]
  - HAEMORRHAGE [None]
  - HEART DISEASE CONGENITAL [None]
  - PERICARDIAL HAEMORRHAGE [None]
